FAERS Safety Report 5515878-8 (Version None)
Quarter: 2007Q4

REPORT INFORMATION
  Report Type: 
  Country: None (occurrence: None)
  Receive Date: 20071109
  Receipt Date: 20071029
  Transmission Date: 20080405
  Serious: Yes (Death, Hospitalization)
  Sender: FDA-Public Use
  Company Number: 2007-03514

PATIENT
  Age: 84 Year
  Sex: Female

DRUGS (8)
  1. VELCADE [Suspect]
     Indication: MULTIPLE MYELOMA
     Dosage: 1.30 MG,
     Dates: start: 20070926, end: 20071010
  2. MELPHALAN [Suspect]
     Indication: MULTIPLE MYELOMA
     Dates: start: 20070926
  3. PREDNISONE TAB [Suspect]
     Indication: MULTIPLE MYELOMA
     Dates: start: 20070926
  4. FENTANYL [Suspect]
     Indication: DRUG USE FOR UNKNOWN INDICATION
  5. LANSOPRAZOLE [Concomitant]
  6. VASORETIC (HYDROCHLOROTHIAZIDE, ENALAPRIL MALEATE) [Concomitant]
  7. ASPIRIN [Concomitant]
  8. PLASIL (METOCLOPRAMIDE HYDROCHLORIDE) [Concomitant]

REACTIONS (7)
  - COGNITIVE DISORDER [None]
  - COMA [None]
  - DEPRESSED LEVEL OF CONSCIOUSNESS [None]
  - HYPOXIC ENCEPHALOPATHY [None]
  - LEFT VENTRICULAR FAILURE [None]
  - PSYCHOMOTOR HYPERACTIVITY [None]
  - SENSORY LOSS [None]
